FAERS Safety Report 10841383 (Version 1)
Quarter: 2015Q1

REPORT INFORMATION
  Report Type: Spontaneous
  Country: JP (occurrence: JP)
  Receive Date: 20150220
  Receipt Date: 20150220
  Transmission Date: 20150721
  Serious: Yes (Other)
  Sender: FDA-Public Use
  Company Number: JP-ROCHE-1538782

PATIENT
  Age: 73 Year
  Sex: Male

DRUGS (3)
  1. 5-FLUOROURACIL [Suspect]
     Active Substance: FLUOROURACIL
     Indication: COLORECTAL CANCER
     Route: 065
  2. BEVACIZUMAB [Suspect]
     Active Substance: BEVACIZUMAB
     Indication: COLORECTAL CANCER
     Route: 065
  3. OXALIPLATIN. [Suspect]
     Active Substance: OXALIPLATIN
     Indication: COLORECTAL CANCER
     Route: 065

REACTIONS (6)
  - Leukopenia [Unknown]
  - Acute respiratory distress syndrome [Recovered/Resolved]
  - Nausea [Unknown]
  - Type IV hypersensitivity reaction [Recovered/Resolved]
  - Neutropenia [Unknown]
  - Haemoptysis [Recovered/Resolved]
